FAERS Safety Report 25093250 (Version 7)
Quarter: 2025Q2

REPORT INFORMATION
  Report Type: Spontaneous
  Country: CN (occurrence: CN)
  Receive Date: 20250319
  Receipt Date: 20250620
  Transmission Date: 20250716
  Serious: Yes (Other)
  Sender: ALEXION PHARMACEUTICALS
  Company Number: CN-AstraZeneca-CH-00824507A

PATIENT
  Age: 60 Year

DRUGS (3)
  1. SYMBICORT [Suspect]
     Active Substance: BUDESONIDE\FORMOTEROL FUMARATE DIHYDRATE
     Indication: Sarcoidosis
     Dosage: UNK UNK, BID
  2. ATORVASTATIN [Concomitant]
     Active Substance: ATORVASTATIN
     Route: 065
  3. HERBALS [Concomitant]
     Active Substance: HERBALS
     Route: 065

REACTIONS (14)
  - Immunodeficiency [Unknown]
  - Influenza [Unknown]
  - Dyspnoea [Unknown]
  - Insomnia [Unknown]
  - Fatigue [Unknown]
  - Headache [Unknown]
  - Dysphonia [Unknown]
  - Product impurity [Unknown]
  - Wrong technique in device usage process [Unknown]
  - Product quality issue [Recovered/Resolved]
  - Drug ineffective [Unknown]
  - Device physical property issue [Unknown]
  - Product label confusion [Unknown]
  - Device delivery system issue [Unknown]
